FAERS Safety Report 16014704 (Version 2)
Quarter: 2019Q1

REPORT INFORMATION
  Report Type: Spontaneous
  Country: IT (occurrence: IT)
  Receive Date: 20190227
  Receipt Date: 20190306
  Transmission Date: 20190418
  Serious: Yes (Other)
  Sender: FDA-Public Use
  Company Number: PHHY2019IT042277

PATIENT
  Age: 77 Year
  Sex: Male

DRUGS (2)
  1. SOTALEX [Suspect]
     Active Substance: SOTALOL
     Indication: EXTRASYSTOLES
     Dosage: 120 MG, QD
     Route: 048
     Dates: start: 20160308
  2. TAMSULOSIN HYDROCHLORIDE. [Suspect]
     Active Substance: TAMSULOSIN HYDROCHLORIDE
     Indication: BENIGN PROSTATIC HYPERPLASIA
     Dosage: 0.4 MG, QD
     Route: 048
     Dates: start: 20160325

REACTIONS (3)
  - Fall [Recovered/Resolved]
  - Vision blurred [Recovered/Resolved]
  - Presyncope [Recovered/Resolved]

NARRATIVE: CASE EVENT DATE: 20181211
